FAERS Safety Report 8963901 (Version 1)
Quarter: 2012Q4

REPORT INFORMATION
  Report Type: Report from Study
  Country: JP (occurrence: JP)
  Receive Date: 20121214
  Receipt Date: 20121214
  Transmission Date: 20130627
  Serious: Yes (Hospitalization)
  Sender: FDA-Public Use
  Company Number: JP-009507513-1210JPN011770

PATIENT
  Age: 84 Year
  Sex: Female

DRUGS (9)
  1. ZOLINZA CAPSULES 100MG [Suspect]
     Indication: MYCOSIS FUNGOIDES
     Dosage: 200 mg, qd
     Route: 048
     Dates: start: 20120827, end: 20120904
  2. VALTREX [Concomitant]
     Indication: MYCOSIS FUNGOIDES
     Dosage: 500 mg, qd
     Route: 048
     Dates: end: 20120925
  3. PREDONINE [Concomitant]
     Indication: MYCOSIS FUNGOIDES
     Dosage: 20 mg, qd
     Route: 048
     Dates: end: 20120918
  4. BAKTAR [Concomitant]
     Indication: MYCOSIS FUNGOIDES
     Dosage: 1 DF, qd
     Route: 048
  5. EDIROL [Concomitant]
     Indication: OSTEOPOROSIS
     Dosage: 0.75 Microgram, qd
     Route: 048
  6. PARIET [Concomitant]
     Indication: GASTRIC ULCER
     Dosage: 10 mg, qd
     Route: 048
  7. TERNELIN [Concomitant]
     Indication: BACK PAIN
     Dosage: 3 mg, tid
     Route: 048
  8. ALOSITOL [Concomitant]
     Indication: GOUT
     Dosage: 100 mg, qd
     Route: 048
  9. FIRSTCIN [Concomitant]
     Indication: MYCOSIS FUNGOIDES
     Dosage: 2 g, bid
     Route: 042
     Dates: start: 20120904, end: 20120916

REACTIONS (7)
  - Dehydration [Recovering/Resolving]
  - Infection [Recovering/Resolving]
  - Inflammation [Recovered/Resolved]
  - Pleural effusion [Recovered/Resolved]
  - Oedema [Recovered/Resolved]
  - Renal disorder [Recovered/Resolved]
  - Hypoalbuminaemia [Recovered/Resolved]
